FAERS Safety Report 6088094-1 (Version None)
Quarter: 2009Q1

REPORT INFORMATION
  Report Type: 
  Country: None (occurrence: None)
  Receive Date: 20090218
  Receipt Date: 20090211
  Transmission Date: 20090719
  Serious: Yes (Life-Threatening, Other)
  Sender: FDA-Public Use
  Company Number: 174710

PATIENT
  Age: 69 Year
  Sex: Female

DRUGS (6)
  1. HEPARIN SODIUM [Suspect]
     Indication: ANTICOAGULANT THERAPY
  2. ASPIRIN [Suspect]
     Indication: ANTIPLATELET THERAPY
  3. CLOPIDOGREL [Suspect]
     Indication: ANTIPLATELET THERAPY
  4. (TIROFIBAN) [Suspect]
     Indication: ANTIPLATELET THERAPY
     Dosage: INFUSION,
  5. (METOPROLOL) [Concomitant]
  6. NITROGLYCERIN [Concomitant]

REACTIONS (13)
  - CATHETER RELATED COMPLICATION [None]
  - CORONARY ARTERY OCCLUSION [None]
  - CORONARY ARTERY STENOSIS [None]
  - HAEMODIALYSIS [None]
  - IATROGENIC INJURY [None]
  - LUNG INJURY [None]
  - NAUSEA [None]
  - RENAL FAILURE ACUTE [None]
  - RENAL HAEMORRHAGE [None]
  - RENAL INJURY [None]
  - RETROPERITONEAL HAEMATOMA [None]
  - SHOCK HAEMORRHAGIC [None]
  - VOMITING [None]
